FAERS Safety Report 7630084-9 (Version None)
Quarter: 2011Q3

REPORT INFORMATION
  Report Type: 
  Country: None (occurrence: None)
  Receive Date: 20110714
  Receipt Date: 20110713
  Transmission Date: 20111222
  Serious: Yes (Death)
  Sender: FDA-Public Use
  Company Number: 2011SP030085

PATIENT
  Age: 44 Year

DRUGS (6)
  1. CITALOPRAM HYDROBROMIDE [Suspect]
  2. CHLORPROMAZINE [Suspect]
  3. METHAMPHETAMINE HYDROCHLORIDE [Suspect]
  4. MIRTAZAPINE [Suspect]
  5. DIAZEPAM [Suspect]
  6. METHADONE HCL [Suspect]
     Indication: DRUG DEPENDENCE

REACTIONS (3)
  - TOXICITY TO VARIOUS AGENTS [None]
  - RESPIRATORY DEPRESSION [None]
  - SNORING [None]
